FAERS Safety Report 8545242-9 (Version None)
Quarter: 2012Q3

REPORT INFORMATION
  Report Type: 
  Country: None (occurrence: None)
  Receive Date: 20120727
  Receipt Date: 20120712
  Transmission Date: 20120928
  Serious: Yes (Other)
  Sender: FDA-Public Use
  Company Number: NO-ASTELLAS-2012EU005301

PATIENT
  Sex: Male

DRUGS (5)
  1. MABTHERA [Suspect]
     Indication: RHEUMATOID ARTHRITIS
     Dosage: 1000 MG, UNKNOWN/D
     Route: 051
     Dates: start: 20070601
  2. CELLCEPT [Suspect]
     Indication: IMMUNOSUPPRESSION
     Dosage: UNK
  3. MABTHERA [Suspect]
     Dosage: TWO RITUXIMAB INFUSIONS OF 1000MG EACH, 2 WEEKS APART.
  4. MABTHERA [Suspect]
     Dosage: MAINTENANCE DOSE. TREATMENT/CUMULATIVE DOSE OF RITUXIMAB RECEIVED WAS 5000MG PRIOR TO LON.
  5. PROGRAF [Suspect]
     Indication: IMMUNOSUPPRESSION
     Dosage: UNK

REACTIONS (2)
  - NEUTROPENIA [None]
  - HYPOGAMMAGLOBULINAEMIA [None]
